FAERS Safety Report 11730997 (Version 1)
Quarter: 2015Q4

REPORT INFORMATION
  Report Type: Spontaneous
  Country: US (occurrence: US)
  Receive Date: 20151110
  Receipt Date: 20151110
  Transmission Date: 20160304
  Serious: No
  Sender: FDA-Public Use
  Company Number: US-ELI_LILLY_AND_COMPANY-US201202007256

PATIENT
  Sex: Female

DRUGS (2)
  1. FORTEO [Suspect]
     Active Substance: TERIPARATIDE
     Indication: OSTEOPOROSIS
     Dosage: 20 UG, QD
     Dates: start: 20101220
  2. VITAMIN D [Concomitant]
     Active Substance: CHOLECALCIFEROL
     Dosage: UNK, WEEKLY (1/W)

REACTIONS (7)
  - Pain in extremity [Unknown]
  - Rash pruritic [Unknown]
  - Erythema [Unknown]
  - Calcinosis [Unknown]
  - Bone density abnormal [Unknown]
  - Pelvic pain [Unknown]
  - Tenderness [Unknown]
